FAERS Safety Report 6505594-8 (Version None)
Quarter: 2009Q4

REPORT INFORMATION
  Report Type: 
  Country: None (occurrence: None)
  Receive Date: 20091218
  Receipt Date: 20091206
  Transmission Date: 20100525
  Serious: Yes (Death, Life-Threatening, Hospitalization, Disabling, Other)
  Sender: FDA-Public Use
  Company Number: CL-PFIZER INC-2009306580

PATIENT
  Age: 39 Year
  Sex: Female

DRUGS (1)
  1. SUNITINIB MALATE [Suspect]
     Indication: RENAL CANCER
     Dosage: 50 MG, 1X/DAY
     Dates: start: 20091108, end: 20091205

REACTIONS (13)
  - BLOOD BILIRUBIN ABNORMAL [None]
  - CARDIAC ARREST [None]
  - COAGULOPATHY [None]
  - COMA [None]
  - GENERAL PHYSICAL HEALTH DETERIORATION [None]
  - GENERALISED OEDEMA [None]
  - LETHARGY [None]
  - PETECHIAE [None]
  - PLATELET COUNT DECREASED [None]
  - PROTHROMBIN LEVEL ABNORMAL [None]
  - RENAL FAILURE [None]
  - TRANSAMINASES INCREASED [None]
  - VOMITING [None]
